FAERS Safety Report 9166291 (Version 1)
Quarter: 2013Q1

REPORT INFORMATION
  Report Type: Spontaneous
  Country: US (occurrence: US)
  Receive Date: 20130315
  Receipt Date: 20130315
  Transmission Date: 20140127
  Serious: No
  Sender: FDA-Public Use
  Company Number: US-009507513-1303USA007450

PATIENT
  Sex: Male

DRUGS (2)
  1. CLARITIN-D 24 HOUR [Suspect]
     Indication: NASAL CONGESTION
     Dosage: UNK, UNKNOWN
     Route: 048
  2. CLARITIN-D 24 HOUR [Suspect]
     Indication: MALAISE

REACTIONS (1)
  - Drug effect decreased [Unknown]
